FAERS Safety Report 7102896-1 (Version None)
Quarter: 2010Q4

REPORT INFORMATION
  Report Type: 
  Country: None (occurrence: None)
  Receive Date: 20101115
  Receipt Date: 20101105
  Transmission Date: 20110411
  Serious: Yes (Other)
  Sender: FDA-Public Use
  Company Number: JP-ASTRAZENECA-2010SE53661

PATIENT
  Age: 61 Year
  Sex: Male

DRUGS (2)
  1. BLOPRESS [Suspect]
     Indication: HYPERTENSION
     Route: 048
     Dates: start: 20040101, end: 20101001
  2. PLETAL [Suspect]
     Route: 048
     Dates: start: 20040101, end: 20101001

REACTIONS (1)
  - INTERSTITIAL LUNG DISEASE [None]
